FAERS Safety Report 4393542-9 (Version None)
Quarter: 2004Q3

REPORT INFORMATION
  Report Type: 
  Country: None (occurrence: None)
  Receive Date: 20040706
  Receipt Date: 20040706
  Transmission Date: 20050211
  Serious: Yes (Hospitalization)
  Sender: FDA-Public Use
  Company Number: None

PATIENT
  Age: 57 Year
  Sex: Male
  Weight: 75 kg

DRUGS (2)
  1. ZOSYN [Suspect]
     Indication: CELLULITIS
     Dosage: 3.375 IV
     Route: 042
     Dates: start: 20040103, end: 20040126
  2. CEFOTAXIME [Suspect]
     Dosage: 1 G IV
     Route: 042
     Dates: start: 20040126, end: 20040128

REACTIONS (1)
  - RENAL FAILURE ACUTE [None]
